FAERS Safety Report 10066879 (Version 1)
Quarter: 2014Q2

REPORT INFORMATION
  Report Type: Spontaneous
  Country: CA (occurrence: CA)
  Receive Date: 20140408
  Receipt Date: 20140408
  Transmission Date: 20141212
  Serious: Yes (Hospitalization)
  Sender: FDA-Public Use
  Company Number: CA-ROCHE-1374975

PATIENT
  Age: 69 Year
  Sex: Female
  Weight: 96 kg

DRUGS (13)
  1. ACTEMRA [Suspect]
     Indication: PRODUCT USED FOR UNKNOWN INDICATION
     Route: 042
  2. APO-NADOL [Suspect]
     Indication: PRODUCT USED FOR UNKNOWN INDICATION
     Route: 065
  3. COVERSYL [Suspect]
     Indication: PRODUCT USED FOR UNKNOWN INDICATION
     Route: 065
  4. LIPITOR [Suspect]
     Indication: PRODUCT USED FOR UNKNOWN INDICATION
     Route: 065
  5. SYNTHROID [Suspect]
     Indication: PRODUCT USED FOR UNKNOWN INDICATION
     Route: 065
  6. CHOLECALCIFEROL [Concomitant]
     Route: 065
  7. COZAAR [Concomitant]
     Route: 065
  8. DELATESTRYL [Concomitant]
     Route: 030
  9. EFFEXOR XR [Concomitant]
     Route: 065
  10. ESTRADIOL [Concomitant]
     Route: 065
  11. TYLENOL [Concomitant]
     Route: 065
  12. XANAX [Concomitant]
     Route: 065
  13. ZOCOR [Concomitant]
     Route: 065

REACTIONS (2)
  - Atrial fibrillation [Recovering/Resolving]
  - Cardiac failure congestive [Recovering/Resolving]
